FAERS Safety Report 6206770-4 (Version None)
Quarter: 2009Q2

REPORT INFORMATION
  Report Type: 
  Country: None (occurrence: None)
  Receive Date: 20090528
  Receipt Date: 20090520
  Transmission Date: 20091009
  Serious: Yes (Death, Hospitalization)
  Sender: FDA-Public Use
  Company Number: US-BIOGENIDEC-203472

PATIENT
  Age: 42 Year
  Sex: Female
  Weight: 46 kg

DRUGS (8)
  1. AVONEX [Suspect]
     Indication: MULTIPLE SCLEROSIS
     Route: 030
     Dates: start: 20010101, end: 20030101
  2. AVONEX [Suspect]
     Route: 030
     Dates: start: 20030101, end: 20031101
  3. AVONEX [Suspect]
     Route: 030
     Dates: start: 20031101
  4. BACLOFEN [Concomitant]
     Indication: MUSCLE RELAXANT THERAPY
  5. COUMADIN [Concomitant]
     Indication: HAEMORRHAGIC DISORDER
  6. DETROL LA [Concomitant]
     Indication: NEUROGENIC BLADDER
  7. PROVIGIL [Concomitant]
     Indication: MULTIPLE SCLEROSIS
  8. ELAVIL [Concomitant]
     Indication: INSOMNIA

REACTIONS (8)
  - BALANCE DISORDER [None]
  - BRAIN STEM HAEMORRHAGE [None]
  - CEREBRAL HAEMORRHAGE [None]
  - CONTUSION [None]
  - FALL [None]
  - INFLUENZA [None]
  - MULTIPLE SCLEROSIS [None]
  - NASOPHARYNGITIS [None]
